FAERS Safety Report 10649813 (Version 2)
Quarter: 2014Q4

REPORT INFORMATION
  Report Type: Spontaneous
  Country: BR (occurrence: BR)
  Receive Date: 20141212
  Receipt Date: 20141226
  Transmission Date: 20150529
  Serious: Yes (Other)
  Sender: FDA-Public Use
  Company Number: PHHY2014BR163125

PATIENT
  Sex: Male
  Weight: 100 kg

DRUGS (2)
  1. EXELON PATCH [Suspect]
     Active Substance: RIVASTIGMINE
     Indication: MEMORY IMPAIRMENT
     Dosage: 4.6 MG, QD (5CM2/9MG) (30 SYSTEMS)
     Route: 062
     Dates: end: 20141205
  2. EXELON PATCH [Suspect]
     Active Substance: RIVASTIGMINE
     Dosage: 9.5 MG, QD (10CM2/18MG) (30 SYSTEMS)
     Route: 062
     Dates: start: 20141005

REACTIONS (4)
  - Product use issue [Unknown]
  - Dysentery [Recovering/Resolving]
  - Confusional state [Unknown]
  - Pruritus generalised [Not Recovered/Not Resolved]
